FAERS Safety Report 10533691 (Version 2)
Quarter: 2015Q1

REPORT INFORMATION
  Report Type: Spontaneous
  Country: CA (occurrence: None)
  Receive Date: 20141020
  Receipt Date: 20150213
  Transmission Date: 20150720
  Serious: Yes (Other)
  Sender: FDA-Public Use
  Company Number: CAO14015516

PATIENT
  Age: 43 Year
  Sex: Male
  Weight: 90.7 kg

DRUGS (1)
  1. ORAL-B ANTI-BACTERIAL W/FLUORIDE RINSE, NATURAL MINT FLVR(ETHANOL 8.0 %, CETYLPYRIDINIUM CHLORIDE 0.05 %, SODIUM FLUORIDE 0.05 %) [Suspect]
     Active Substance: CETYLPYRIDINIUM CHLORIDE\SODIUM FLUORIDE
     Dosage: RINSE CUP 2 TIMES A DAY FOR 2-3 WEEKS, INTRAORAL
     Dates: start: 2011, end: 201109

REACTIONS (9)
  - Malaise [None]
  - Urinary incontinence [None]
  - Dizziness [None]
  - Haematuria [None]
  - Product contamination [None]
  - Disturbance in attention [None]
  - Loss of consciousness [None]
  - Headache [None]
  - Asthenia [None]

NARRATIVE: CASE EVENT DATE: 201108
